FAERS Safety Report 26167718 (Version 1)
Quarter: 2025Q4

REPORT INFORMATION
  Report Type: Report from Study
  Country: PH (occurrence: PH)
  Receive Date: 20251217
  Receipt Date: 20251217
  Transmission Date: 20260117
  Serious: Yes (Other)
  Sender: ROCHE
  Company Number: PH-ROCHE-10000453423

PATIENT
  Age: 48 Year
  Sex: Female

DRUGS (3)
  1. AVASTIN [Suspect]
     Active Substance: BEVACIZUMAB
     Indication: Ovarian epithelial cancer
     Dosage: MORE DOSAGE INGO: 400MG X1 VIAL
     Route: 042
  2. AVASTIN [Suspect]
     Active Substance: BEVACIZUMAB
     Indication: Fallopian tube cancer
  3. AVASTIN [Suspect]
     Active Substance: BEVACIZUMAB
     Indication: Malignant peritoneal neoplasm

REACTIONS (1)
  - Colitis [Unknown]
